FAERS Safety Report 15496210 (Version 3)
Quarter: 2018Q4

REPORT INFORMATION
  Report Type: Spontaneous
  Country: US (occurrence: US)
  Receive Date: 20181012
  Receipt Date: 20181030
  Transmission Date: 20190205
  Serious: Yes (Other)
  Sender: FDA-Public Use
  Company Number: US-ACTELION-A-NJ2018-179866

PATIENT
  Age: 30 Year
  Sex: Female
  Weight: 84.81 kg

DRUGS (5)
  1. BUDESONIDE. [Concomitant]
     Active Substance: BUDESONIDE
     Dosage: UNK
     Dates: start: 2018
  2. ADCIRCA [Concomitant]
     Active Substance: TADALAFIL
     Dosage: UNK
     Dates: start: 2017
  3. UPTRAVI [Suspect]
     Active Substance: SELEXIPAG
     Indication: PULMONARY ARTERIAL HYPERTENSION
     Dosage: 600 MCG, BID
     Route: 048
     Dates: start: 20180301
  4. LETAIRIS [Concomitant]
     Active Substance: AMBRISENTAN
     Dosage: UNK
     Dates: start: 2017
  5. LETAIRIS [Concomitant]
     Active Substance: AMBRISENTAN
     Dosage: UNK

REACTIONS (6)
  - Condition aggravated [Unknown]
  - Chest pain [Unknown]
  - Dyspnoea [Unknown]
  - Exposure during pregnancy [Unknown]
  - Abortion induced [Unknown]
  - Pregnancy [Unknown]
